FAERS Safety Report 4796209-8 (Version None)
Quarter: 2005Q4

REPORT INFORMATION
  Report Type: 
  Country: None (occurrence: None)
  Receive Date: 20051007
  Receipt Date: 20050929
  Transmission Date: 20060501
  Serious: Yes (Death)
  Sender: FDA-Public Use
  Company Number: 2005042896

PATIENT
  Age: 85 Year
  Sex: Female

DRUGS (6)
  1. NEURONTIN [Suspect]
     Indication: BURNING SENSATION
     Dosage: 800 MG (200 MG, 4 IN 1 D), ORAL
     Route: 048
     Dates: start: 20040101, end: 20050801
  2. NEURONTIN [Suspect]
     Indication: NEUROPATHY
     Dosage: 800 MG (200 MG, 4 IN 1 D), ORAL
     Route: 048
     Dates: start: 20040101, end: 20050801
  3. AGGRENOX [Concomitant]
  4. ZOLOFT [Concomitant]
  5. ALPRAZOLAM [Concomitant]
  6. WARFARIN SODIUM [Concomitant]

REACTIONS (2)
  - BURNING SENSATION [None]
  - INTESTINAL INFARCTION [None]
